FAERS Safety Report 16380119 (Version 1)
Quarter: 2019Q2

REPORT INFORMATION
  Report Type: Spontaneous
  Country: US (occurrence: US)
  Receive Date: 20190601
  Receipt Date: 20190601
  Transmission Date: 20190711
  Serious: No
  Sender: FDA-Public Use
  Company Number: US-BAUSCH-BL-2019-014962

PATIENT
  Sex: Female

DRUGS (5)
  1. DIASTAT [Suspect]
     Active Substance: DIAZEPAM
     Indication: DYSTONIA
     Route: 054
     Dates: end: 2019
  2. DIASTAT [Suspect]
     Active Substance: DIAZEPAM
     Indication: SEIZURE
  3. TOPAMAX [Concomitant]
     Active Substance: TOPIRAMATE
     Indication: PRODUCT USED FOR UNKNOWN INDICATION
  4. ATROVENT [Concomitant]
     Active Substance: IPRATROPIUM BROMIDE
     Indication: PRODUCT USED FOR UNKNOWN INDICATION
  5. COGENTIN [Concomitant]
     Active Substance: BENZTROPINE MESYLATE
     Indication: PRODUCT USED FOR UNKNOWN INDICATION

REACTIONS (3)
  - Insurance issue [Unknown]
  - Therapy cessation [Unknown]
  - Choking [Unknown]

NARRATIVE: CASE EVENT DATE: 2019
